FAERS Safety Report 10636405 (Version 1)
Quarter: 2014Q4

REPORT INFORMATION
  Report Type: Spontaneous
  Country: US (occurrence: US)
  Receive Date: 20141207
  Receipt Date: 20141207
  Transmission Date: 20150529
  Serious: No
  Sender: FDA-Public Use
  Company Number: US-GLAXOSMITHKLINE-A1058552A

PATIENT

DRUGS (1)
  1. HYCAMTIN [Suspect]
     Active Substance: TOPOTECAN HYDROCHLORIDE
     Indication: PRODUCT USED FOR UNKNOWN INDICATION
     Dosage: 2 (0.25 MG) CAPSULES AND 5 (1 MG) CAPSULES FOR 5 DAYS EVERY 21 DAYS (5.5 MG TOTAL)
     Route: 065

REACTIONS (1)
  - Blood test abnormal [Unknown]
